FAERS Safety Report 19591663 (Version 1)
Quarter: 2021Q3

REPORT INFORMATION
  Report Type: Spontaneous
  Country: US (occurrence: US)
  Receive Date: 20210721
  Receipt Date: 20210721
  Transmission Date: 20211014
  Serious: No
  Sender: FDA-Public Use
  Company Number: US-TAKEDA-2021TUS044559

PATIENT
  Sex: Female
  Weight: 50 kg

DRUGS (1)
  1. LIALDA [Suspect]
     Active Substance: MESALAMINE
     Indication: COLITIS
     Dosage: 3, 4 OR 2 PILLS DEPENDING ON WHAT IS GOING ON THAT DAY
     Route: 065

REACTIONS (4)
  - Flatulence [Unknown]
  - Abdominal distension [Unknown]
  - Muscle spasms [Unknown]
  - Drug ineffective [Unknown]
